FAERS Safety Report 17148255 (Version 1)
Quarter: 2019Q4

REPORT INFORMATION
  Report Type: Spontaneous
  Country: RU (occurrence: RU)
  Receive Date: 20191212
  Receipt Date: 20191212
  Transmission Date: 20200122
  Serious: Yes (Hospitalization, Other)
  Sender: FDA-Public Use
  Company Number: RU-BRISTOL-MYERS SQUIBB COMPANY-BMS-2019-116987

PATIENT
  Age: 56 Year
  Sex: Male

DRUGS (2)
  1. IPILIMUMAB [Suspect]
     Active Substance: IPILIMUMAB
     Indication: METASTATIC MALIGNANT MELANOMA
     Dosage: 3 MILLIGRAM/KILOGRAM
     Route: 065
     Dates: start: 20180227
  2. NIVOLUMAB [Suspect]
     Active Substance: NIVOLUMAB
     Indication: METASTATIC MALIGNANT MELANOMA
     Dosage: 1 MILLIGRAM/KILOGRAM
     Route: 065
     Dates: start: 20180227

REACTIONS (9)
  - Skin toxicity [Unknown]
  - Rash [Unknown]
  - Hyperthyroidism [Unknown]
  - Steroid diabetes [Unknown]
  - Pneumonia [Unknown]
  - Autoimmune hepatitis [Unknown]
  - Metastases to breast [Unknown]
  - Atrial fibrillation [Unknown]
  - Metastases to central nervous system [Unknown]
